FAERS Safety Report 22227278 (Version 1)
Quarter: 2023Q2

REPORT INFORMATION
  Report Type: Spontaneous
  Country: JP (occurrence: JP)
  Receive Date: 20230419
  Receipt Date: 20230419
  Transmission Date: 20230722
  Serious: Yes (Death, Other)
  Sender: FDA-Public Use
  Company Number: JP-MSD-2304JPN001771J

PATIENT
  Sex: Male

DRUGS (1)
  1. LAGEVRIO [Suspect]
     Active Substance: MOLNUPIRAVIR
     Indication: COVID-19 treatment
     Dosage: 1000 MILLIGRAM, BID
     Route: 048
     Dates: start: 202301

REACTIONS (9)
  - Death [Fatal]
  - Cerebral infarction [Unknown]
  - Thrombosis [Unknown]
  - Pneumonia [Unknown]
  - Cardiac failure [Unknown]
  - Gait inability [Unknown]
  - Pyrexia [Unknown]
  - Overdose [Unknown]
  - Product use issue [Unknown]

NARRATIVE: CASE EVENT DATE: 20230101
